FAERS Safety Report 12079945 (Version 2)
Quarter: 2016Q4

REPORT INFORMATION
  Report Type: Report from Study
  Country: US (occurrence: US)
  Receive Date: 20160216
  Receipt Date: 20161028
  Transmission Date: 20170206
  Serious: No
  Sender: FDA-Public Use
  Company Number: US-TAKEDA-2016TUS002366

PATIENT
  Sex: Female

DRUGS (1)
  1. VEDOLIZUMAB [Suspect]
     Active Substance: VEDOLIZUMAB
     Indication: COLITIS ULCERATIVE
     Dosage: 300 MG, UNK
     Route: 042
     Dates: start: 201601

REACTIONS (4)
  - Malaise [Unknown]
  - Headache [Not Recovered/Not Resolved]
  - Haemorrhage [Unknown]
  - Adverse event [Unknown]
